FAERS Safety Report 4183296 (Version 2)
Quarter: 2012Q4

REPORT INFORMATION
  Report Type: 
  Country: US (occurrence: US)
  Receive Date: 20040727
  Receipt Date: 20121119
  Transmission Date: 20130627
  Serious: Yes (Hospitalization)
  Sender: FDA-Public Use
  Company Number: US-JNJFOC-20040705769

PATIENT
  Sex: Female
  Weight: 72.58 kg

DRUGS (10)
  1. MOTRIN [Suspect]
     Indication: BACK DISORDER
     Route: 048
  2. MOTRIN [Suspect]
     Indication: BACK DISORDER
     Dosage: unknown dose on and off for a couple of months
     Route: 048
     Dates: start: 2004
  3. MOTRIN [Suspect]
     Indication: MUSCULOSKELETAL DISORDER
     Route: 048
  4. MOTRIN [Suspect]
     Indication: MUSCULOSKELETAL DISORDER
     Dosage: unknown dose on and off for a couple of months
     Route: 048
     Dates: start: 2004
  5. MOTRIN [Suspect]
     Indication: PERIODONTAL OPERATION
     Route: 048
  6. MOTRIN [Suspect]
     Indication: PERIODONTAL OPERATION
     Dosage: unknown dose on and off for a couple of months
     Route: 048
     Dates: start: 2004
  7. PROTONIX [Concomitant]
     Route: 048
  8. PREMARIN [Concomitant]
     Route: 048
     Dates: start: 2000
  9. SYNTHROID [Concomitant]
     Route: 048
     Dates: start: 1973
  10. NITROGLYCERIN [Concomitant]
     Route: 048

REACTIONS (3)
  - Chest pain [Unknown]
  - Occult blood positive [Unknown]
  - Abdominal pain [Unknown]
